FAERS Safety Report 9096541 (Version 3)
Quarter: 2013Q2

REPORT INFORMATION
  Report Type: Spontaneous
  Country: US (occurrence: None)
  Receive Date: 20130124
  Receipt Date: 20130404
  Transmission Date: 20140414
  Serious: Yes (Other)
  Sender: FDA-Public Use
  Company Number: ADR-2013-00093

PATIENT
  Age: 53 Year
  Sex: Female

DRUGS (2)
  1. BACLOFEN [Suspect]
     Indication: SPINAL PAIN
  2. DILAUDID [Concomitant]

REACTIONS (8)
  - Accident [None]
  - Ankle fracture [None]
  - Spinal disorder [None]
  - Joint injury [None]
  - Back pain [None]
  - Muscle strain [None]
  - Pain in extremity [None]
  - Medical device complication [None]
